FAERS Safety Report 21688189 (Version 1)
Quarter: 2022Q4

REPORT INFORMATION
  Report Type: Spontaneous
  Country: US (occurrence: US)
  Receive Date: 20221206
  Receipt Date: 20221206
  Transmission Date: 20230112
  Serious: Yes (Death)
  Sender: FDA-Public Use
  Company Number: US-AZURITY PHARMACEUTICALS, INC.-US-2022ARB003011

PATIENT
  Sex: Male

DRUGS (1)
  1. KATERZIA [Suspect]
     Active Substance: AMLODIPINE BENZOATE
     Indication: Heart transplant
     Dosage: UNK

REACTIONS (1)
  - Death [Fatal]
